FAERS Safety Report 10244497 (Version 2)
Quarter: 2014Q2

REPORT INFORMATION
  Report Type: Spontaneous
  Country: FR (occurrence: FR)
  Receive Date: 20140618
  Receipt Date: 20140630
  Transmission Date: 20141212
  Serious: Yes (Hospitalization)
  Sender: FDA-Public Use
  Company Number: FR-GLAXOSMITHKLINE-B1002392A

PATIENT
  Age: 44 Year
  Sex: Female
  Weight: 57 kg

DRUGS (4)
  1. BENLYSTA [Suspect]
     Indication: SYSTEMIC LUPUS ERYTHEMATOSUS
     Dosage: 10MGK CYCLIC
     Route: 042
     Dates: start: 201403, end: 20140506
  2. IXPRIM [Suspect]
     Indication: ARTHRALGIA
     Dosage: 37.5MG TWICE PER DAY
     Route: 048
     Dates: start: 20140518, end: 20140520
  3. PLAQUENIL [Concomitant]
     Indication: SYSTEMIC LUPUS ERYTHEMATOSUS
     Dosage: 200MG TWICE PER DAY
     Route: 048
     Dates: start: 1996, end: 201401
  4. VOLTAREN [Concomitant]
     Indication: ARTHRALGIA
     Route: 065

REACTIONS (2)
  - Pancreatitis acute [Recovered/Resolved]
  - Abdominal pain upper [Recovered/Resolved]
